FAERS Safety Report 18362074 (Version 7)
Quarter: 2024Q2

REPORT INFORMATION
  Report Type: Other
  Country: US (occurrence: None)
  Receive Date: 20201009
  Receipt Date: 20240411
  Transmission Date: 20240715
  Serious: Yes (Other)
  Sender: FDA-Public Use
  Company Number: US-ROCHE-2563353

PATIENT
  Age: 64 Year
  Sex: Male
  Weight: 104.42 kg

DRUGS (69)
  1. OCREVUS [Suspect]
     Active Substance: OCRELIZUMAB
     Indication: Primary progressive multiple sclerosis
     Dosage: 600 MG EVERY 6 MONTHS AFTER NEXT 300 MG DOSE
     Route: 042
     Dates: start: 20200228
  2. OCREVUS [Suspect]
     Active Substance: OCRELIZUMAB
     Dosage: FIRST HALF-DOSE (300 MG)
     Route: 042
     Dates: start: 20191022
  3. OCREVUS [Suspect]
     Active Substance: OCRELIZUMAB
     Route: 042
     Dates: start: 2019
  4. OCREVUS [Suspect]
     Active Substance: OCRELIZUMAB
     Route: 042
     Dates: start: 2019
  5. OCREVUS [Suspect]
     Active Substance: OCRELIZUMAB
     Route: 042
     Dates: start: 202002
  6. CLOTRIMAZOLE [Suspect]
     Active Substance: CLOTRIMAZOLE
     Indication: Candida infection
     Dosage: TAKE FOR 30 DAYS
     Route: 048
     Dates: start: 2020, end: 2020
  7. OXYCODONE [Concomitant]
     Active Substance: OXYCODONE\OXYCODONE HYDROCHLORIDE
     Route: 048
  8. GABAPENTIN [Concomitant]
     Active Substance: GABAPENTIN
     Indication: Demyelination
     Route: 048
  9. GABAPENTIN [Concomitant]
     Active Substance: GABAPENTIN
     Indication: Multiple sclerosis
     Route: 065
     Dates: start: 2010, end: 202010
  10. GABAPENTIN [Concomitant]
     Active Substance: GABAPENTIN
     Route: 065
     Dates: start: 202010
  11. BACLOFEN [Concomitant]
     Active Substance: BACLOFEN
     Indication: Musculoskeletal pain
     Dosage: ONE TO TWO TABLETS AT BEDTIME
     Route: 048
     Dates: start: 20191021
  12. BACLOFEN [Concomitant]
     Active Substance: BACLOFEN
     Indication: Muscle spasms
     Route: 048
     Dates: start: 2020
  13. BACLOFEN [Concomitant]
     Active Substance: BACLOFEN
     Route: 048
  14. BACLOFEN [Concomitant]
     Active Substance: BACLOFEN
     Route: 048
     Dates: start: 202009
  15. LISINOPRIL [Concomitant]
     Active Substance: LISINOPRIL
     Indication: Hypertension
     Route: 048
  16. LISINOPRIL [Concomitant]
     Active Substance: LISINOPRIL
     Route: 065
     Dates: start: 2017
  17. LISINOPRIL [Concomitant]
     Active Substance: LISINOPRIL
     Route: 048
     Dates: start: 2021
  18. ATENOLOL [Concomitant]
     Active Substance: ATENOLOL
     Indication: Hypertension
     Route: 048
  19. ATENOLOL [Concomitant]
     Active Substance: ATENOLOL
     Route: 048
  20. ATENOLOL [Concomitant]
     Active Substance: ATENOLOL
     Route: 065
     Dates: start: 2018
  21. ATENOLOL [Concomitant]
     Active Substance: ATENOLOL
     Route: 065
     Dates: start: 2019
  22. LANSOPRAZOLE [Concomitant]
     Active Substance: LANSOPRAZOLE
     Indication: Erosive oesophagitis
     Dates: start: 201910, end: 201910
  23. OMEPRAZOLE [Concomitant]
     Active Substance: OMEPRAZOLE
     Indication: Erosive oesophagitis
     Route: 048
  24. OMEPRAZOLE [Concomitant]
     Active Substance: OMEPRAZOLE
     Route: 065
     Dates: start: 2020
  25. DONEPEZIL [Concomitant]
     Active Substance: DONEPEZIL
     Route: 048
  26. MIRTAZAPINE [Concomitant]
     Active Substance: MIRTAZAPINE
     Indication: Blood pressure measurement
     Route: 048
  27. MIRTAZAPINE [Concomitant]
     Active Substance: MIRTAZAPINE
     Route: 048
  28. PRAZOSIN [Concomitant]
     Active Substance: PRAZOSIN
     Indication: Neurogenic bladder
     Route: 048
     Dates: start: 2019, end: 20200224
  29. MYRBETRIQ [Concomitant]
     Active Substance: MIRABEGRON
     Indication: Neurogenic bladder
     Route: 048
     Dates: start: 20200225
  30. COENZYME Q10 [Concomitant]
     Active Substance: DIETARY SUPPLEMENT\UBIDECARENONE
     Route: 048
  31. SUPER B COMPLEX WITH C [Concomitant]
     Route: 048
  32. VITAMIN D3 [Concomitant]
     Active Substance: CHOLECALCIFEROL
     Route: 048
  33. VITAMIN D3 [Concomitant]
     Active Substance: CHOLECALCIFEROL
     Route: 048
  34. TYLENOL [Concomitant]
     Active Substance: ACETAMINOPHEN
     Indication: Premedication
  35. BENADRYL [Concomitant]
     Active Substance: DIPHENHYDRAMINE HYDROCHLORIDE
     Indication: Premedication
  36. NEURONTIN [Concomitant]
     Active Substance: GABAPENTIN
     Route: 048
  37. NEURONTIN [Concomitant]
     Active Substance: GABAPENTIN
     Route: 048
     Dates: start: 202009
  38. MELOXICAM [Concomitant]
     Active Substance: MELOXICAM
     Indication: Spinal pain
     Route: 048
     Dates: start: 20200924
  39. MELOXICAM [Concomitant]
     Active Substance: MELOXICAM
     Route: 065
     Dates: start: 202010
  40. OXYCODONE HYDROCHLORIDE [Concomitant]
     Active Substance: OXYCODONE HYDROCHLORIDE
     Indication: Spinal pain
     Route: 048
  41. ARICEPT [Concomitant]
     Active Substance: DONEPEZIL HYDROCHLORIDE
     Indication: Memory impairment
     Route: 048
  42. ZOLOFT [Concomitant]
     Active Substance: SERTRALINE HYDROCHLORIDE
     Indication: Depression
     Route: 048
  43. ZOLOFT [Concomitant]
     Active Substance: SERTRALINE HYDROCHLORIDE
     Dates: start: 2020
  44. ZOLOFT [Concomitant]
     Active Substance: SERTRALINE HYDROCHLORIDE
  45. MISOPROSTOL [Concomitant]
     Active Substance: MISOPROSTOL
     Indication: Pain
     Dosage: FOR 10 DAYS
     Route: 048
     Dates: start: 20200924
  46. MISOPROSTOL [Concomitant]
     Active Substance: MISOPROSTOL
     Indication: Fatigue
  47. COENZYME Q10 [Concomitant]
     Active Substance: DIETARY SUPPLEMENT\UBIDECARENONE
     Route: 048
  48. ACETAMINOPHEN\DIPHENHYDRAMINE HYDROCHLORIDE [Concomitant]
     Active Substance: ACETAMINOPHEN\DIPHENHYDRAMINE HYDROCHLORIDE
     Dosage: TOTAL OF 1000 MG ACETAMINOPHEN AND 50 MG BENADRYL
     Route: 048
  49. FLUARIX NOS [Concomitant]
     Active Substance: INFLUENZA VIRUS VACCINE
     Dosage: ONE DOSE
     Dates: start: 20200827
  50. VARICELLA-ZOSTER VACCINE NOS [Concomitant]
     Active Substance: VARICELLA-ZOSTER VACCINE
     Dosage: X 1 (FIRST DOSE)
     Dates: start: 20200131
  51. VARICELLA-ZOSTER VACCINE NOS [Concomitant]
     Active Substance: VARICELLA-ZOSTER VACCINE
     Dosage: X 1 (2ND DOSE)
     Dates: start: 20200429
  52. TOVIAZ [Concomitant]
     Active Substance: FESOTERODINE FUMARATE
     Indication: Neurogenic bladder
     Route: 048
     Dates: start: 202005, end: 20200605
  53. DONEPEZIL HYDROCHLORIDE [Concomitant]
     Active Substance: DONEPEZIL HYDROCHLORIDE
     Route: 048
     Dates: start: 2017, end: 2020
  54. REMERON [Concomitant]
     Active Substance: MIRTAZAPINE
     Route: 048
     Dates: start: 2020, end: 2020
  55. SYMMETREL [Concomitant]
     Active Substance: AMANTADINE HYDROCHLORIDE
     Indication: Fatigue
     Dosage: 200 MG IN THE MORNING AND 100 MG BEFORE 2PM
     Route: 048
     Dates: start: 2018
  56. B12 [Concomitant]
  57. VITAMIN D3 [Concomitant]
     Active Substance: CHOLECALCIFEROL
  58. VALSARTAN [Concomitant]
     Active Substance: VALSARTAN
     Route: 048
     Dates: start: 2020, end: 20210414
  59. IBUPROFEN [Concomitant]
     Active Substance: IBUPROFEN
     Indication: Oedema
     Route: 048
     Dates: start: 2020
  60. SHINGRIX [Concomitant]
     Active Substance: RECOMBINANT VARICELLA ZOSTER VIRUS (VZV) GLYCOPROTEIN E
     Dosage: FIRST DOSE 31-JAN-2020 + SECOND DOSE 29-APR-2020
     Route: 030
     Dates: start: 20200131, end: 20200131
  61. TETANUS TOXOID, REDUCED DIPHTHERIA TOXOID AND ACELLULAR PERTUSSIS VACC [Concomitant]
     Active Substance: TETANUS TOXOID, REDUCED DIPHTHERIA TOXOID AND ACELLULAR PERTUSSIS VACCINE ADSORBED, TDAP
  62. PHENERGAN [Concomitant]
     Active Substance: PROMETHAZINE HYDROCHLORIDE
     Indication: Nausea
     Route: 048
     Dates: start: 2020
  63. PHENERGAN [Concomitant]
     Active Substance: PROMETHAZINE HYDROCHLORIDE
     Indication: Vomiting
     Route: 065
     Dates: start: 2020
  64. DIOVAN [Concomitant]
     Active Substance: VALSARTAN
     Indication: Hypertension
  65. PREDNISONE [Concomitant]
     Active Substance: PREDNISONE
  66. DOXYCYCLINE [Concomitant]
     Active Substance: DOXYCYCLINE
  67. OLMESARTAN [Concomitant]
     Active Substance: OLMESARTAN
  68. ATENOLOL [Concomitant]
     Active Substance: ATENOLOL
  69. SOLU-MEDROL [Concomitant]
     Active Substance: METHYLPREDNISOLONE SODIUM SUCCINATE

REACTIONS (43)
  - Headache [Recovering/Resolving]
  - Tinnitus [Recovering/Resolving]
  - Throat tightness [Recovered/Resolved]
  - Rash [Recovered/Resolved]
  - Oropharyngeal pain [Unknown]
  - Pain in jaw [Not Recovered/Not Resolved]
  - Vomiting [Recovered/Resolved]
  - Tremor [Recovered/Resolved]
  - Paraesthesia [Recovered/Resolved]
  - Arthralgia [Not Recovered/Not Resolved]
  - Musculoskeletal pain [Not Recovered/Not Resolved]
  - Oral candidiasis [Not Recovered/Not Resolved]
  - Dysphagia [Not Recovered/Not Resolved]
  - Fall [Unknown]
  - Magnetic resonance imaging abnormal [Not Recovered/Not Resolved]
  - Ageusia [Not Recovered/Not Resolved]
  - Exostosis [Not Recovered/Not Resolved]
  - Blood pressure increased [Recovered/Resolved]
  - Multiple sclerosis [Not Recovered/Not Resolved]
  - Muscle twitching [Recovered/Resolved]
  - Hypotension [Unknown]
  - Oedema [Not Recovered/Not Resolved]
  - Lyme disease [Not Recovered/Not Resolved]
  - Cartilage injury [Recovered/Resolved]
  - Nausea [Recovering/Resolving]
  - Depression [Unknown]
  - Facial pain [Not Recovered/Not Resolved]
  - Bone pain [Not Recovered/Not Resolved]
  - Feeling abnormal [Unknown]
  - Blood pressure abnormal [Recovering/Resolving]
  - Blood magnesium decreased [Unknown]
  - Anaemia [Not Recovered/Not Resolved]
  - Blood creatinine increased [Unknown]
  - Oedema [Not Recovered/Not Resolved]
  - Dysphagia [Recovering/Resolving]
  - Visual impairment [Not Recovered/Not Resolved]
  - Foreign body in eye [Not Recovered/Not Resolved]
  - Dysuria [Recovered/Resolved]
  - Sleep apnoea syndrome [Not Recovered/Not Resolved]
  - Deafness [Not Recovered/Not Resolved]
  - Fatigue [Not Recovered/Not Resolved]
  - Temperature intolerance [Not Recovered/Not Resolved]
  - Vein disorder [Not Recovered/Not Resolved]

NARRATIVE: CASE EVENT DATE: 20190101
